FAERS Safety Report 4952328-4 (Version None)
Quarter: 2006Q1

REPORT INFORMATION
  Report Type: 
  Country: None (occurrence: None)
  Receive Date: 20060131
  Receipt Date: 20041208
  Transmission Date: 20060701
  Serious: Yes (Life-Threatening, Other)
  Sender: FDA-Public Use
  Company Number: WAES 0411USA01999

PATIENT
  Age: 49 Year
  Sex: Male

DRUGS (4)
  1. INVANZ [Suspect]
     Dosage: 1 GM/DAILY/IV
     Route: 042
     Dates: start: 20041110, end: 20041110
  2. BENADRYL [Concomitant]
  3. PRIMAXIN [Concomitant]
  4. TYLENOL (CAPLET) [Concomitant]

REACTIONS (1)
  - ANAPHYLACTIC REACTION [None]
